FAERS Safety Report 7378202-4 (Version None)
Quarter: 2011Q1

REPORT INFORMATION
  Report Type: 
  Country: None (occurrence: None)
  Receive Date: 20110328
  Receipt Date: 20110321
  Transmission Date: 20110831
  Serious: Yes (Other)
  Sender: FDA-Public Use
  Company Number: A0909485A

PATIENT
  Age: 59 Year
  Sex: Female

DRUGS (7)
  1. LOVAZA [Suspect]
     Dosage: 2CAP PER DAY
     Route: 048
     Dates: start: 20090101
  2. VERAPAMIL [Concomitant]
  3. LIPITOR [Concomitant]
  4. MAXALT [Concomitant]
  5. HYDROCODONE BITARTRATE [Concomitant]
  6. NEURONTIN [Concomitant]
  7. PROCARDIA [Concomitant]

REACTIONS (2)
  - TRANSIENT ISCHAEMIC ATTACK [None]
  - HEADACHE [None]
